FAERS Safety Report 9580600 (Version 2)
Quarter: 2013Q4

REPORT INFORMATION
  Report Type: Spontaneous
  Country: JP (occurrence: JP)
  Receive Date: 20131002
  Receipt Date: 20131002
  Transmission Date: 20140711
  Serious: Yes (Hospitalization, Other)
  Sender: FDA-Public Use
  Company Number: JP-PFIZER INC-2013280759

PATIENT
  Age: 64 Year
  Sex: Male
  Weight: 47.4 kg

DRUGS (2)
  1. HEPARIN SODIUM [Suspect]
     Dosage: UNK
  2. ASPIRIN [Suspect]
     Indication: ISCHAEMIC HEART DISEASE PROPHYLAXIS
     Dosage: UNK

REACTIONS (3)
  - Shock haemorrhagic [Recovered/Resolved]
  - Renal cell carcinoma [Recovered/Resolved]
  - Haemoglobin decreased [Unknown]
